FAERS Safety Report 22996415 (Version 3)
Quarter: 2023Q4

REPORT INFORMATION
  Report Type: Spontaneous
  Country: BG (occurrence: None)
  Receive Date: 20230928
  Receipt Date: 20231021
  Transmission Date: 20240110
  Serious: Yes (Hospitalization)
  Sender: FDA-Public Use
  Company Number: BG-ROCHE-3429280

PATIENT
  Age: 65 Year
  Sex: Female

DRUGS (1)
  1. EVRYSDI [Suspect]
     Active Substance: RISDIPLAM
     Indication: Spinal muscular atrophy
     Route: 048
     Dates: start: 202211

REACTIONS (1)
  - Endometrial cancer [Not Recovered/Not Resolved]

NARRATIVE: CASE EVENT DATE: 20230801
